FAERS Safety Report 7440428-9 (Version None)
Quarter: 2011Q2

REPORT INFORMATION
  Report Type: 
  Country: None (occurrence: None)
  Receive Date: 20110427
  Receipt Date: 20110420
  Transmission Date: 20111010
  Serious: Yes (Death)
  Sender: FDA-Public Use
  Company Number: JP-AMGEN-JPNCT2011018382

PATIENT
  Age: 71 Year
  Sex: Male

DRUGS (6)
  1. PANITUMUMAB [Suspect]
     Indication: COLORECTAL CANCER
     Dosage: 300 MG, Q2WK
     Route: 041
     Dates: start: 20101215, end: 20110316
  2. POLARAMINE [Concomitant]
     Route: 041
     Dates: start: 20101215, end: 20110316
  3. GASTER [Concomitant]
     Route: 041
     Dates: start: 20101215, end: 20110316
  4. CAMPTOSAR [Suspect]
     Indication: COLORECTAL CANCER
     Route: 041
     Dates: start: 20101215, end: 20110316
  5. DECADRON [Concomitant]
     Route: 041
     Dates: start: 20101215, end: 20110316
  6. ALOXI [Concomitant]
     Route: 041
     Dates: start: 20101215, end: 20110316

REACTIONS (3)
  - PANCYTOPENIA [None]
  - SEPSIS [None]
  - SKIN DISORDER [None]
